FAERS Safety Report 17485098 (Version 15)
Quarter: 2025Q1

REPORT INFORMATION
  Report Type: Report from Study
  Country: IT (occurrence: IT)
  Receive Date: 20200302
  Receipt Date: 20250321
  Transmission Date: 20250409
  Serious: Yes (Hospitalization, Other)
  Sender: TAKEDA
  Company Number: IT-SHIRE-IT201919957

PATIENT
  Age: 47 Year
  Sex: Male
  Weight: 61 kg

DRUGS (23)
  1. TEDUGLUTIDE [Suspect]
     Active Substance: TEDUGLUTIDE
     Indication: Short-bowel syndrome
     Dosage: 2.8 MILLIGRAM, QD
     Dates: start: 20190304, end: 20201205
  2. TEDUGLUTIDE [Suspect]
     Active Substance: TEDUGLUTIDE
     Dosage: 2.8 MILLIGRAM, QD
     Dates: start: 20210201, end: 20210908
  3. TEDUGLUTIDE [Suspect]
     Active Substance: TEDUGLUTIDE
     Dosage: 2.8 MILLIGRAM, QD
     Dates: start: 20211002, end: 20230110
  4. TEDUGLUTIDE [Suspect]
     Active Substance: TEDUGLUTIDE
     Dosage: 2.8 MILLIGRAM, QD
     Dates: start: 20230308
  5. LANSOPRAZOLE [Concomitant]
     Active Substance: LANSOPRAZOLE
     Indication: Prophylaxis
     Dosage: 30 MILLIGRAM, BID
  6. BACTRIM [Concomitant]
     Active Substance: SULFAMETHOXAZOLE\TRIMETHOPRIM
     Indication: Short-bowel syndrome
     Dosage: UNK, BID
     Dates: start: 20190504, end: 201906
  7. LAMICTAL [Concomitant]
     Active Substance: LAMOTRIGINE
     Indication: Osteoporosis
     Dosage: 50 MILLIGRAM, BID
  8. CHOLECALCIFEROL [Concomitant]
     Active Substance: CHOLECALCIFEROL
     Indication: Nutritional supplementation
     Dosage: 100000 INTERNATIONAL UNIT, Q3MONTHS
     Dates: start: 2019
  9. KONAKION [Concomitant]
     Active Substance: PHYTONADIONE
     Indication: Prophylaxis
     Dosage: 20 MILLIGRAM, 1/WEEK
     Dates: end: 2019
  10. HUMIRA [Concomitant]
     Active Substance: ADALIMUMAB
     Indication: Product used for unknown indication
  11. ACLASTA [Concomitant]
     Active Substance: ZOLEDRONIC ACID
     Indication: Osteoporosis
  12. CLODRONATE DISODIUM [Concomitant]
     Active Substance: CLODRONATE DISODIUM
     Indication: Osteoporosis
  13. FOLIC ACID [Concomitant]
     Active Substance: FOLIC ACID
     Indication: Nutritional supplementation
     Dosage: 5 MILLIGRAM, QD
     Dates: start: 2019
  14. CLARITHROMYCIN [Concomitant]
     Active Substance: CLARITHROMYCIN
     Indication: Sepsis
     Dosage: 500 MILLIGRAM, TID
     Dates: start: 20200311, end: 20200319
  15. CLARITHROMYCIN [Concomitant]
     Active Substance: CLARITHROMYCIN
     Indication: Pyrexia
  16. AUGMENTIN [Concomitant]
     Active Substance: AMOXICILLIN\CLAVULANATE POTASSIUM
     Indication: Sepsis
     Dosage: UNK UNK, TID
     Dates: start: 20200306, end: 20200312
  17. AUGMENTIN [Concomitant]
     Active Substance: AMOXICILLIN\CLAVULANATE POTASSIUM
     Indication: Pyrexia
  18. LEVOFLOXACIN [Concomitant]
     Active Substance: LEVOFLOXACIN
     Indication: Device dislocation
     Dates: start: 20201020, end: 20201028
  19. CEFTRIAXONE [Concomitant]
     Active Substance: CEFTRIAXONE
     Indication: Device dislocation
     Dosage: 2 GRAM, QD
     Dates: start: 20201020, end: 20201030
  20. CEFTRIAXONE SODIUM [Concomitant]
     Active Substance: CEFTRIAXONE SODIUM
     Indication: Pyrexia
     Dosage: UNK UNK, BID
     Dates: start: 20200320, end: 20200330
  21. CEFTRIAXONE SODIUM [Concomitant]
     Active Substance: CEFTRIAXONE SODIUM
     Indication: Prophylaxis
  22. Polimag fast [Concomitant]
     Indication: Hypomagnesaemia
     Dosage: 1 DOSAGE FORM, BID
     Dates: start: 20230308
  23. SULFASALAZINE [Concomitant]
     Active Substance: SULFASALAZINE
     Indication: Rheumatoid arthritis

REACTIONS (12)
  - Pneumonia [Recovered/Resolved]
  - Pyelonephritis [Recovered/Resolved]
  - Device related thrombosis [Recovered/Resolved]
  - Hyperpyrexia [Recovered/Resolved]
  - Staphylococcal infection [Recovered/Resolved]
  - Device dislocation [Recovered/Resolved]
  - Catheter site infection [Recovered/Resolved]
  - Dermatitis contact [Recovered/Resolved]
  - Pain in extremity [Recovered/Resolved]
  - Skin injury [Recovered/Resolved]
  - COVID-19 [Recovered/Resolved]
  - Catheter site pain [Recovered/Resolved]

NARRATIVE: CASE EVENT DATE: 20190611
